FAERS Safety Report 15621799 (Version 1)
Quarter: 2018Q4

REPORT INFORMATION
  Report Type: Spontaneous
  Country: US (occurrence: US)
  Receive Date: 20181113
  Receipt Date: 20181113
  Transmission Date: 20190205
  Serious: Yes (Other)
  Sender: FDA-Public Use
  Company Number: None

PATIENT
  Age: 67 Year
  Sex: Male
  Weight: 98 kg

DRUGS (21)
  1. METOPROLOL SUCCINATE 100MG [Concomitant]
     Dates: start: 20181027, end: 20181030
  2. HEPARIN [Suspect]
     Active Substance: HEPARIN SODIUM
     Indication: CATHETERISATION CARDIAC
     Dosage: ?          OTHER FREQUENCY:ONCE;?
     Route: 013
     Dates: start: 20181031, end: 20181031
  3. AMLODIPINE [Concomitant]
     Active Substance: AMLODIPINE BESYLATE
     Dates: start: 20181027, end: 20181031
  4. FAMOTIDINE 20MG [Concomitant]
     Active Substance: FAMOTIDINE
     Dates: start: 20181027, end: 20181031
  5. HEPARIN 5000 UNITS [Concomitant]
     Dates: start: 20181026, end: 20181031
  6. HYDRALAZINE 10MG [Concomitant]
     Active Substance: HYDRALAZINE HYDROCHLORIDE
     Dates: start: 20181030, end: 20181031
  7. SIMVASTATIN 20MG [Concomitant]
     Active Substance: SIMVASTATIN
     Dates: start: 20181026, end: 20181030
  8. TAMSULOSIN 0.4MG [Concomitant]
     Active Substance: TAMSULOSIN
     Dates: start: 20181027, end: 20181031
  9. IODIXANOL. [Concomitant]
     Active Substance: IODIXANOL
     Dates: start: 20181031, end: 20181031
  10. LIDOCAINE 1% [Concomitant]
     Active Substance: LIDOCAINE
     Dates: start: 20181031, end: 20181031
  11. VERAPAMIL 5MG [Concomitant]
     Dates: start: 20181031, end: 20181031
  12. ACETYLCYSTEINE 1200MG [Concomitant]
     Dates: start: 20181030, end: 20181031
  13. HUMALOG [Concomitant]
     Active Substance: INSULIN LISPRO
     Dates: start: 20181027, end: 20181031
  14. FENTANYL 50MCG [Concomitant]
     Dates: start: 20181031, end: 20181031
  15. ALLOPURINOL 100MG [Concomitant]
     Active Substance: ALLOPURINOL
     Dates: start: 20181027, end: 20181031
  16. ASPIRIN 81MG [Concomitant]
     Active Substance: ASPIRIN
     Dates: start: 20181027, end: 20181031
  17. AZITHROMYCIN 500MG [Concomitant]
     Active Substance: AZITHROMYCIN
     Dates: start: 20181026, end: 20181030
  18. GABAPENTIN 300MG [Concomitant]
     Active Substance: GABAPENTIN
     Dates: start: 20181026, end: 20181031
  19. MIDAZOLAM 2MG [Concomitant]
     Dates: start: 20181031, end: 20181031
  20. NITROGLYCERIN 400MCG [Concomitant]
     Dates: start: 20181031, end: 20181031
  21. CLOPIDOGREL [Concomitant]
     Active Substance: CLOPIDOGREL BISULFATE
     Dates: start: 20181027, end: 20181031

REACTIONS (1)
  - Vascular stent thrombosis [None]

NARRATIVE: CASE EVENT DATE: 20181031
